FAERS Safety Report 6276281-9 (Version None)
Quarter: 2009Q3

REPORT INFORMATION
  Report Type: 
  Country: None (occurrence: None)
  Receive Date: 20090722
  Receipt Date: 20090713
  Transmission Date: 20100115
  Serious: Yes (Other)
  Sender: FDA-Public Use
  Company Number: US-JNJFOC-20090604302

PATIENT
  Sex: Male
  Weight: 29.03 kg

DRUGS (2)
  1. CONCERTA [Suspect]
     Indication: ATTENTION DEFICIT/HYPERACTIVITY DISORDER
     Route: 048
  2. ZYRTEC [Concomitant]
     Indication: MULTIPLE ALLERGIES
     Route: 048

REACTIONS (7)
  - DECREASED APPETITE [None]
  - DIZZINESS [None]
  - GROWTH RETARDATION [None]
  - HEADACHE [None]
  - HYPERHIDROSIS [None]
  - TIC [None]
  - WEIGHT GAIN POOR [None]
